FAERS Safety Report 7091824-3 (Version None)
Quarter: 2010Q4

REPORT INFORMATION
  Report Type: 
  Country: None (occurrence: None)
  Receive Date: 20101101
  Receipt Date: 20101021
  Transmission Date: 20110411
  Serious: Yes (Hospitalization)
  Sender: FDA-Public Use
  Company Number: 2010SP057026

PATIENT
  Sex: Male

DRUGS (2)
  1. DULERA TABLET [Suspect]
     Indication: PRODUCT USED FOR UNKNOWN INDICATION
     Dosage: ; INH
     Route: 055
  2. ADVAIR [Suspect]
     Indication: PRODUCT USED FOR UNKNOWN INDICATION
     Dosage: ; INH
     Route: 055

REACTIONS (2)
  - DRUG ADMINISTRATION ERROR [None]
  - UNEVALUABLE EVENT [None]
